FAERS Safety Report 5265386-7 (Version None)
Quarter: 2007Q1

REPORT INFORMATION
  Report Type: 
  Country: None (occurrence: None)
  Receive Date: 20070314
  Receipt Date: 20070308
  Transmission Date: 20070707
  Serious: Yes (Other)
  Sender: FDA-Public Use
  Company Number: US-SANOFI-SYNTHELABO-F01200700308

PATIENT
  Sex: Female
  Weight: 58.2 kg

DRUGS (12)
  1. TELMISARTAN [Concomitant]
     Indication: HYPERTENSION
     Dates: start: 20070301
  2. METOPROLOL SUCCINATE [Concomitant]
     Indication: HYPERTENSION
     Dates: start: 20061026
  3. ACETAMINOPHEN [Concomitant]
     Indication: PROPHYLAXIS OF NAUSEA AND VOMITING
     Dates: start: 20070306, end: 20070306
  4. ONDANSETRON [Concomitant]
     Indication: PROPHYLAXIS OF NAUSEA AND VOMITING
     Dates: start: 20070306, end: 20070306
  5. CA/MG OR PLACEBO [Suspect]
     Route: 042
     Dates: start: 20070306, end: 20070306
  6. BEVACIZUMAB [Suspect]
     Route: 042
     Dates: start: 20070306, end: 20070306
  7. LEUCOVORIN CALCIUM [Suspect]
     Route: 042
     Dates: start: 20070306, end: 20070306
  8. OXALIPLATIN [Suspect]
     Indication: COLORECTAL CANCER METASTATIC
     Route: 042
     Dates: start: 20070306, end: 20070306
  9. DEXAMETHASONE [Suspect]
     Indication: PROPHYLAXIS OF NAUSEA AND VOMITING
     Dates: start: 20070306, end: 20070306
  10. FLUOROURACIL [Suspect]
     Dosage: 2400 MG/M2 IV ON DAY 1 AND DAY 2, Q2W
     Route: 042
     Dates: start: 20070306, end: 20070307
  11. DIPHENHYDRAMINE HCL [Suspect]
     Indication: PROPHYLAXIS OF NAUSEA AND VOMITING
     Dates: start: 20070306, end: 20070306
  12. K-DUR 10 [Concomitant]
     Indication: HYPOKALAEMIA
     Dates: start: 20070220

REACTIONS (1)
  - CONFUSIONAL STATE [None]
